FAERS Safety Report 5468560-X (Version None)
Quarter: 2007Q3

REPORT INFORMATION
  Report Type: 
  Country: None (occurrence: None)
  Receive Date: 20070926
  Receipt Date: 20070921
  Transmission Date: 20080115
  Serious: Yes (Hospitalization)
  Sender: FDA-Public Use
  Company Number: FRWYE362024SEP07

PATIENT
  Age: 14 Month
  Sex: Male
  Weight: 10.24 kg

DRUGS (1)
  1. ADVIL [Suspect]
     Indication: PYREXIA
     Route: 048
     Dates: start: 20070623, end: 20070625

REACTIONS (4)
  - BLISTER INFECTED [None]
  - CHILLS [None]
  - OXYGEN SATURATION DECREASED [None]
  - VARICELLA [None]
